FAERS Safety Report 6453621-9 (Version None)
Quarter: 2009Q4

REPORT INFORMATION
  Report Type: 
  Country: None (occurrence: None)
  Receive Date: 20091124
  Receipt Date: 20091111
  Transmission Date: 20100525
  Serious: Yes (Other)
  Sender: FDA-Public Use
  Company Number: PHHY2009JP49469

PATIENT
  Age: 75 Year
  Sex: Male

DRUGS (2)
  1. VOLTAREN [Suspect]
     Indication: ANALGESIC THERAPY
     Dosage: 25 MG/DAY
     Route: 054
  2. CRAVIT [Concomitant]
     Dosage: 500 MG, UNK
     Route: 048

REACTIONS (3)
  - BACTERIAL INFECTION [None]
  - CONVULSION [None]
  - SURGERY [None]
